FAERS Safety Report 21228523 (Version 2)
Quarter: 2022Q3

REPORT INFORMATION
  Report Type: Spontaneous
  Country: JP (occurrence: JP)
  Receive Date: 20220818
  Receipt Date: 20220831
  Transmission Date: 20221027
  Serious: Yes (Other)
  Sender: FDA-Public Use
  Company Number: JP-OTSUKA-2022_040787

PATIENT
  Age: 29 Year
  Sex: Male

DRUGS (8)
  1. ABILIFY [Suspect]
     Active Substance: ARIPIPRAZOLE
     Indication: Schizoaffective disorder
     Dosage: UNK
     Route: 030
  2. ABILIFY [Suspect]
     Active Substance: ARIPIPRAZOLE
     Dosage: UNK
     Route: 030
  3. VALPROATE SODIUM [Suspect]
     Active Substance: VALPROATE SODIUM
     Indication: Schizoaffective disorder
     Dosage: 800 MG/DAY
     Route: 048
  4. VALPROATE SODIUM [Suspect]
     Active Substance: VALPROATE SODIUM
     Dosage: DOSE REDUCED
     Route: 048
  5. LITHIUM CARBONATE [Suspect]
     Active Substance: LITHIUM CARBONATE
     Indication: Schizoaffective disorder
     Dosage: 800 MG/DAY
     Route: 048
  6. LITHIUM CARBONATE [Suspect]
     Active Substance: LITHIUM CARBONATE
     Dosage: DOSE REDUCED
     Route: 048
  7. LURASIDONE HYDROCHLORIDE [Suspect]
     Active Substance: LURASIDONE HYDROCHLORIDE
     Indication: Schizoaffective disorder
     Dosage: 40 MG/DAY
     Route: 048
  8. LURASIDONE HYDROCHLORIDE [Suspect]
     Active Substance: LURASIDONE HYDROCHLORIDE
     Dosage: DOSE REDUCED
     Route: 048

REACTIONS (4)
  - Schizoaffective disorder [Unknown]
  - Somnolence [Recovered/Resolved]
  - Dyskinesia [Not Recovered/Not Resolved]
  - Product use in unapproved indication [Unknown]

NARRATIVE: CASE EVENT DATE: 20190913
